FAERS Safety Report 15938871 (Version 2)
Quarter: 2019Q2

REPORT INFORMATION
  Report Type: Report from Study
  Country: US (occurrence: US)
  Receive Date: 20190208
  Receipt Date: 20190613
  Transmission Date: 20190711
  Serious: Yes (Other)
  Sender: FDA-Public Use
  Company Number: US-SA-2019SA035640

PATIENT
  Age: 58 Year
  Sex: Male

DRUGS (3)
  1. ALEMTUZUMAB [Suspect]
     Active Substance: ALEMTUZUMAB
     Dosage: 12 MG QD
     Route: 041
     Dates: start: 20171130, end: 20171202
  2. BIOTIN [Suspect]
     Active Substance: BIOTIN
     Dosage: UNK UNK, UNK
     Route: 065
  3. ALEMTUZUMAB [Suspect]
     Active Substance: ALEMTUZUMAB
     Dosage: 12 MG, QD
     Route: 041
     Dates: start: 201611, end: 2016

REACTIONS (2)
  - Autoimmune disorder [Unknown]
  - Blood thyroid stimulating hormone decreased [Unknown]
